FAERS Safety Report 8412245-4 (Version None)
Quarter: 2012Q2

REPORT INFORMATION
  Report Type: 
  Country: None (occurrence: None)
  Receive Date: 20120605
  Receipt Date: 20120510
  Transmission Date: 20120825
  Serious: No
  Sender: FDA-Public Use
  Company Number: US-AMGEN-USASP2012031247

PATIENT
  Sex: Female

DRUGS (1)
  1. ENBREL [Suspect]
     Indication: PRODUCT USED FOR UNKNOWN INDICATION
     Dosage: UNK, WEEKLY
     Dates: start: 20120101

REACTIONS (5)
  - CONTUSION [None]
  - FATIGUE [None]
  - SKIN MASS [None]
  - HEADACHE [None]
  - PHOTOSENSITIVITY REACTION [None]
